FAERS Safety Report 23366839 (Version 42)
Quarter: 2024Q4

REPORT INFORMATION
  Report Type: Report from Study
  Country: CN (occurrence: CN)
  Receive Date: 20240104
  Receipt Date: 20241016
  Transmission Date: 20250114
  Serious: Yes (Life-Threatening, Hospitalization)
  Sender: SANOFI AVENTIS
  Company Number: CN-SA-SAC20231226000864

PATIENT
  Age: 64 Year
  Sex: Male
  Weight: 75 kg

DRUGS (101)
  1. ISATUXIMAB [Suspect]
     Active Substance: ISATUXIMAB
     Indication: Plasma cell myeloma refractory
     Dosage: 840 MG
     Route: 042
     Dates: start: 20230302, end: 20230302
  2. ISATUXIMAB [Suspect]
     Active Substance: ISATUXIMAB
     Dosage: 840 MG
     Route: 042
     Dates: start: 20230309, end: 20230309
  3. ISATUXIMAB [Suspect]
     Active Substance: ISATUXIMAB
     Dosage: 820 MG
     Route: 042
     Dates: start: 20230323, end: 20230323
  4. ISATUXIMAB [Suspect]
     Active Substance: ISATUXIMAB
     Dosage: 820 MG
     Route: 042
     Dates: start: 20230330, end: 20230330
  5. ISATUXIMAB [Suspect]
     Active Substance: ISATUXIMAB
     Dosage: 820 MG
     Route: 042
     Dates: start: 20230413, end: 20230413
  6. ISATUXIMAB [Suspect]
     Active Substance: ISATUXIMAB
     Dosage: 780 MG
     Route: 042
     Dates: start: 20230427, end: 20230427
  7. ISATUXIMAB [Suspect]
     Active Substance: ISATUXIMAB
     Dosage: 780 MG
     Route: 042
     Dates: start: 20230511, end: 20230511
  8. ISATUXIMAB [Suspect]
     Active Substance: ISATUXIMAB
     Dosage: 780 MG
     Route: 042
     Dates: start: 20230609, end: 20230609
  9. ISATUXIMAB [Suspect]
     Active Substance: ISATUXIMAB
     Dosage: 740 MG
     Route: 042
     Dates: start: 20230623, end: 20230623
  10. ISATUXIMAB [Suspect]
     Active Substance: ISATUXIMAB
     Dosage: 740 MG
     Route: 042
     Dates: start: 20230707, end: 20230707
  11. ISATUXIMAB [Suspect]
     Active Substance: ISATUXIMAB
     Dosage: 740 MG
     Route: 042
     Dates: start: 20230721, end: 20230721
  12. ISATUXIMAB [Suspect]
     Active Substance: ISATUXIMAB
     Dosage: 760 MG
     Route: 042
     Dates: start: 20230914, end: 20230914
  13. ISATUXIMAB [Suspect]
     Active Substance: ISATUXIMAB
     Dosage: 272 MG
     Route: 042
     Dates: start: 20231206, end: 20231206
  14. ISATUXIMAB [Suspect]
     Active Substance: ISATUXIMAB
     Dosage: 700 MG
     Route: 042
     Dates: start: 20240131, end: 20240131
  15. ISATUXIMAB [Suspect]
     Active Substance: ISATUXIMAB
     Dosage: 740 MG
     Route: 042
     Dates: start: 20240221, end: 20240221
  16. ISATUXIMAB [Suspect]
     Active Substance: ISATUXIMAB
     Dosage: 720 MG
     Route: 042
     Dates: start: 20240306, end: 20240306
  17. ISATUXIMAB [Suspect]
     Active Substance: ISATUXIMAB
     Dosage: 700 MG
     Route: 042
     Dates: start: 20231220, end: 20231220
  18. ISATUXIMAB [Suspect]
     Active Substance: ISATUXIMAB
     Dosage: 700 MG
     Route: 042
     Dates: start: 20240103, end: 20240103
  19. ISATUXIMAB [Suspect]
     Active Substance: ISATUXIMAB
     Dosage: 700 MG
     Route: 042
     Dates: start: 20240117, end: 20240117
  20. ISATUXIMAB [Suspect]
     Active Substance: ISATUXIMAB
     Dosage: 720 MG
     Route: 042
     Dates: start: 20240328, end: 20240328
  21. ISATUXIMAB [Suspect]
     Active Substance: ISATUXIMAB
     Dosage: 740 MG
     Route: 042
     Dates: start: 20240411, end: 20240411
  22. ISATUXIMAB [Suspect]
     Active Substance: ISATUXIMAB
     Dosage: 740 MG
     Route: 042
     Dates: start: 20240425, end: 20240425
  23. ISATUXIMAB [Suspect]
     Active Substance: ISATUXIMAB
     Dosage: 740 MG
     Route: 042
     Dates: start: 20240514, end: 20240514
  24. ISATUXIMAB [Suspect]
     Active Substance: ISATUXIMAB
     Dosage: 700 MG
     Route: 042
     Dates: start: 20240611, end: 20240611
  25. ISATUXIMAB [Suspect]
     Active Substance: ISATUXIMAB
     Dosage: 720 MG
     Route: 042
     Dates: start: 20240625, end: 20240625
  26. ISATUXIMAB [Suspect]
     Active Substance: ISATUXIMAB
     Dosage: 720 MG
     Route: 042
     Dates: start: 20240711, end: 20240711
  27. ISATUXIMAB [Suspect]
     Active Substance: ISATUXIMAB
     Dosage: 740 MG
     Route: 042
     Dates: start: 20240725, end: 20240725
  28. ISATUXIMAB [Suspect]
     Active Substance: ISATUXIMAB
     Dosage: 740 MG
     Route: 042
     Dates: start: 20240808, end: 20240808
  29. ISATUXIMAB [Suspect]
     Active Substance: ISATUXIMAB
     Dosage: 720 MG
     Route: 042
     Dates: start: 20240822, end: 20240822
  30. ISATUXIMAB [Suspect]
     Active Substance: ISATUXIMAB
     Dosage: 720 MG
     Route: 042
     Dates: start: 20240905, end: 20240905
  31. POMALIDOMIDE [Suspect]
     Active Substance: POMALIDOMIDE
     Indication: Plasma cell myeloma refractory
     Dosage: 4 MG
     Route: 048
     Dates: start: 20230223, end: 20230315
  32. POMALIDOMIDE [Suspect]
     Active Substance: POMALIDOMIDE
     Dosage: 4 MG
     Route: 048
     Dates: start: 20230302, end: 20230313
  33. POMALIDOMIDE [Suspect]
     Active Substance: POMALIDOMIDE
     Dosage: 3 MG
     Route: 048
     Dates: start: 20230427, end: 20230510
  34. POMALIDOMIDE [Suspect]
     Active Substance: POMALIDOMIDE
     Dosage: 3 MG
     Route: 048
     Dates: start: 20230330, end: 20230419
  35. POMALIDOMIDE [Suspect]
     Active Substance: POMALIDOMIDE
     Dosage: 3 MG
     Route: 048
     Dates: start: 20230525, end: 20230611
  36. POMALIDOMIDE [Suspect]
     Active Substance: POMALIDOMIDE
     Dosage: 3 MG
     Route: 048
     Dates: start: 20230623, end: 20230713
  37. POMALIDOMIDE [Suspect]
     Active Substance: POMALIDOMIDE
     Dosage: 3 MG
     Route: 048
     Dates: start: 20230721, end: 20230810
  38. POMALIDOMIDE [Suspect]
     Active Substance: POMALIDOMIDE
     Dosage: 3 MG
     Route: 048
     Dates: start: 20230818, end: 20230831
  39. POMALIDOMIDE [Suspect]
     Active Substance: POMALIDOMIDE
     Dosage: 2 MG
     Route: 048
     Dates: start: 20231028, end: 20231102
  40. POMALIDOMIDE [Suspect]
     Active Substance: POMALIDOMIDE
     Dosage: 2 MG
     Route: 048
     Dates: start: 20230914, end: 20230920
  41. POMALIDOMIDE [Suspect]
     Active Substance: POMALIDOMIDE
     Dosage: 2 MG
     Route: 048
     Dates: start: 20231206, end: 20231221
  42. POMALIDOMIDE [Suspect]
     Active Substance: POMALIDOMIDE
     Dosage: 2 MG
     Route: 048
     Dates: start: 20240131, end: 20240220
  43. POMALIDOMIDE [Suspect]
     Active Substance: POMALIDOMIDE
     Dosage: 2 MG
     Route: 048
     Dates: start: 20231225, end: 20231226
  44. POMALIDOMIDE [Suspect]
     Active Substance: POMALIDOMIDE
     Dosage: 2 MG
     Route: 048
     Dates: start: 20240103, end: 20240123
  45. POMALIDOMIDE [Suspect]
     Active Substance: POMALIDOMIDE
     Dosage: 2 MG
     Route: 048
     Dates: start: 20240131, end: 20240220
  46. POMALIDOMIDE [Suspect]
     Active Substance: POMALIDOMIDE
     Dosage: 2 MG
     Route: 048
     Dates: start: 20240306, end: 20240319
  47. POMALIDOMIDE [Suspect]
     Active Substance: POMALIDOMIDE
     Dosage: 4 MG
     Route: 048
     Dates: start: 20240411, end: 20240501
  48. POMALIDOMIDE [Suspect]
     Active Substance: POMALIDOMIDE
     Dosage: 1 MG
     Route: 048
     Dates: start: 20240517, end: 20240603
  49. POMALIDOMIDE [Suspect]
     Active Substance: POMALIDOMIDE
     Dosage: 1 MG
     Route: 048
     Dates: start: 20240611, end: 20240701
  50. POMALIDOMIDE [Suspect]
     Active Substance: POMALIDOMIDE
     Dosage: 1 MG
     Route: 048
     Dates: start: 20240711, end: 20240731
  51. POMALIDOMIDE [Suspect]
     Active Substance: POMALIDOMIDE
     Dosage: 1 MG
     Route: 048
     Dates: start: 20240808, end: 20240821
  52. DEXAMETHASONE [Suspect]
     Active Substance: DEXAMETHASONE
     Indication: Plasma cell myeloma refractory
     Dosage: 40 MG
     Route: 042
     Dates: start: 20230302, end: 20230302
  53. DEXAMETHASONE [Suspect]
     Active Substance: DEXAMETHASONE
     Dosage: 40 MG
     Route: 042
     Dates: start: 20230309, end: 20230309
  54. DEXAMETHASONE [Suspect]
     Active Substance: DEXAMETHASONE
     Dosage: 40 MG
     Route: 042
     Dates: start: 20230316, end: 20230316
  55. DEXAMETHASONE [Suspect]
     Active Substance: DEXAMETHASONE
     Dosage: 40 MG
     Route: 042
     Dates: start: 20230323, end: 20230323
  56. DEXAMETHASONE [Suspect]
     Active Substance: DEXAMETHASONE
     Dosage: 40 MG
     Route: 042
     Dates: start: 20230330, end: 20230330
  57. DEXAMETHASONE [Suspect]
     Active Substance: DEXAMETHASONE
     Dosage: 40 MG
     Route: 048
     Dates: start: 20230406, end: 20230406
  58. DEXAMETHASONE [Suspect]
     Active Substance: DEXAMETHASONE
     Dosage: 40 MG
     Route: 042
     Dates: start: 20230413, end: 20230413
  59. DEXAMETHASONE [Suspect]
     Active Substance: DEXAMETHASONE
     Dosage: 40 MG
     Route: 048
     Dates: start: 20230420, end: 20230420
  60. DEXAMETHASONE [Suspect]
     Active Substance: DEXAMETHASONE
     Dosage: 40 MG
     Route: 048
     Dates: start: 20230427, end: 20230427
  61. DEXAMETHASONE [Suspect]
     Active Substance: DEXAMETHASONE
     Dosage: 40 MG
     Route: 048
     Dates: start: 20230504, end: 20230504
  62. DEXAMETHASONE [Suspect]
     Active Substance: DEXAMETHASONE
     Dosage: 40 MG
     Route: 042
     Dates: start: 20230511, end: 20230511
  63. DEXAMETHASONE [Suspect]
     Active Substance: DEXAMETHASONE
     Dosage: 40 MG
     Route: 048
     Dates: start: 20230518, end: 20230518
  64. DEXAMETHASONE [Suspect]
     Active Substance: DEXAMETHASONE
     Dosage: 40 MG
     Route: 042
     Dates: start: 20230525, end: 20230525
  65. DEXAMETHASONE [Suspect]
     Active Substance: DEXAMETHASONE
     Dosage: 40 MG
     Route: 042
     Dates: start: 20230525, end: 20230525
  66. DEXAMETHASONE [Suspect]
     Active Substance: DEXAMETHASONE
     Dosage: 40 MG
     Route: 048
     Dates: start: 20230601, end: 20230601
  67. DEXAMETHASONE [Suspect]
     Active Substance: DEXAMETHASONE
     Dosage: 40 MG
     Route: 042
     Dates: start: 20230609, end: 20230609
  68. DEXAMETHASONE [Suspect]
     Active Substance: DEXAMETHASONE
     Dosage: 40 MG
     Route: 048
     Dates: start: 20230630, end: 20230630
  69. DEXAMETHASONE [Suspect]
     Active Substance: DEXAMETHASONE
     Dosage: 40 MG
     Route: 042
     Dates: start: 20230707, end: 20230707
  70. DEXAMETHASONE [Suspect]
     Active Substance: DEXAMETHASONE
     Dosage: 30 MG
     Route: 048
     Dates: start: 20230714, end: 20230714
  71. DEXAMETHASONE [Suspect]
     Active Substance: DEXAMETHASONE
     Dosage: 40 MG
     Route: 042
     Dates: start: 20230804, end: 20230804
  72. DEXAMETHASONE [Suspect]
     Active Substance: DEXAMETHASONE
     Dosage: 40 MG
     Route: 048
     Dates: start: 20230811, end: 20230811
  73. DEXAMETHASONE [Suspect]
     Active Substance: DEXAMETHASONE
     Dosage: 40 MG
     Route: 042
     Dates: start: 20230818, end: 20230818
  74. DEXAMETHASONE [Suspect]
     Active Substance: DEXAMETHASONE
     Dosage: 40 MG
     Route: 042
     Dates: start: 20230825, end: 20230825
  75. DEXAMETHASONE [Suspect]
     Active Substance: DEXAMETHASONE
     Dosage: 40 MG
     Route: 042
     Dates: start: 20230921, end: 20230921
  76. DEXAMETHASONE [Suspect]
     Active Substance: DEXAMETHASONE
     Dosage: 40 MG
     Route: 042
     Dates: start: 20230921, end: 20230921
  77. DEXAMETHASONE [Suspect]
     Active Substance: DEXAMETHASONE
     Dosage: 20 MG
     Route: 042
     Dates: start: 20231028, end: 20231028
  78. DEXAMETHASONE [Suspect]
     Active Substance: DEXAMETHASONE
     Dosage: 20 MG
     Route: 048
     Dates: start: 20231104, end: 20231104
  79. DEXAMETHASONE [Suspect]
     Active Substance: DEXAMETHASONE
     Dosage: 20 MG
     Route: 042
     Dates: start: 20231206, end: 20231206
  80. DEXAMETHASONE [Suspect]
     Active Substance: DEXAMETHASONE
     Dosage: 20 MG
     Route: 048
     Dates: start: 20231213, end: 20231213
  81. DEXAMETHASONE [Suspect]
     Active Substance: DEXAMETHASONE
     Dosage: 20 MG
     Route: 042
     Dates: start: 20231220, end: 20231220
  82. DEXAMETHASONE [Suspect]
     Active Substance: DEXAMETHASONE
     Dosage: 20 MG
     Route: 048
     Dates: start: 20231227, end: 20231227
  83. DEXAMETHASONE [Suspect]
     Active Substance: DEXAMETHASONE
     Dosage: 20 MG
     Route: 042
     Dates: start: 20240131
  84. DEXAMETHASONE [Suspect]
     Active Substance: DEXAMETHASONE
     Dosage: 20 MG
     Route: 048
     Dates: start: 20240207
  85. DEXAMETHASONE [Suspect]
     Active Substance: DEXAMETHASONE
     Dosage: 20 MG
     Route: 042
     Dates: start: 20240221
  86. DEXAMETHASONE [Suspect]
     Active Substance: DEXAMETHASONE
     Dosage: 20 MG
     Route: 048
     Dates: start: 20240228
  87. DEXAMETHASONE [Suspect]
     Active Substance: DEXAMETHASONE
     Dosage: 20 MG
     Route: 042
     Dates: start: 20240306, end: 20240306
  88. DEXAMETHASONE [Suspect]
     Active Substance: DEXAMETHASONE
     Dosage: 20 MG
     Route: 048
     Dates: start: 20240313, end: 20240313
  89. DEXAMETHASONE [Suspect]
     Active Substance: DEXAMETHASONE
     Dosage: 15 MG
     Route: 048
     Dates: start: 20240328, end: 20240328
  90. DEXAMETHASONE [Suspect]
     Active Substance: DEXAMETHASONE
     Dosage: 15 MG
     Route: 048
     Dates: start: 20240404, end: 20240404
  91. DEXAMETHASONE [Suspect]
     Active Substance: DEXAMETHASONE
     Dosage: 15 MG
     Route: 048
     Dates: start: 20240411, end: 20240411
  92. DEXAMETHASONE [Suspect]
     Active Substance: DEXAMETHASONE
     Dosage: 15 MG
     Route: 048
     Dates: start: 20240418, end: 20240418
  93. DEXAMETHASONE [Suspect]
     Active Substance: DEXAMETHASONE
     Dosage: 15 MG
     Route: 048
     Dates: start: 20240425, end: 20240425
  94. DEXAMETHASONE [Suspect]
     Active Substance: DEXAMETHASONE
     Dosage: 15 MG
     Route: 048
     Dates: start: 20240502, end: 20240502
  95. DEXAMETHASONE [Suspect]
     Active Substance: DEXAMETHASONE
     Dosage: 15 MG
     Route: 048
     Dates: start: 20240521, end: 20240521
  96. DEXAMETHASONE [Suspect]
     Active Substance: DEXAMETHASONE
     Dosage: 15 MG
     Route: 042
     Dates: start: 20240528, end: 20240528
  97. DEXAMETHASONE [Suspect]
     Active Substance: DEXAMETHASONE
     Dosage: 15 MG
     Route: 048
     Dates: start: 20240604, end: 20240604
  98. DEXAMETHASONE [Suspect]
     Active Substance: DEXAMETHASONE
     Dosage: 15 MG
     Route: 042
     Dates: start: 20240611, end: 20240611
  99. DEXAMETHASONE [Suspect]
     Active Substance: DEXAMETHASONE
     Dosage: 15 MG
     Route: 048
     Dates: start: 20240618, end: 20240618
  100. DEXAMETHASONE [Suspect]
     Active Substance: DEXAMETHASONE
     Dosage: 15 MG
     Route: 042
     Dates: start: 20240625, end: 20240625
  101. DEXAMETHASONE [Suspect]
     Active Substance: DEXAMETHASONE
     Dosage: 15 MG
     Route: 048
     Dates: start: 20240702, end: 20240702

REACTIONS (22)
  - Neutrophil count decreased [Recovered/Resolved]
  - Platelet count decreased [Recovered/Resolved]
  - Platelet count decreased [Recovered/Resolved]
  - Neutrophil count decreased [Recovered/Resolved]
  - Neutrophil count decreased [Recovered/Resolved]
  - Neutrophil count decreased [Recovered/Resolved]
  - Neutrophil count decreased [Recovered/Resolved]
  - Enteritis [Recovered/Resolved]
  - Hypokalaemia [Recovered/Resolved]
  - Anaemia [Recovered/Resolved]
  - Anaemia [Not Recovered/Not Resolved]
  - White blood cell count decreased [Recovered/Resolved]
  - White blood cell count decreased [Not Recovered/Not Resolved]
  - Hypocalcaemia [Recovered/Resolved]
  - White blood cell count decreased [Recovered/Resolved]
  - Cytomegalovirus chorioretinitis [Not Recovered/Not Resolved]
  - Neutrophil count decreased [Recovered/Resolved]
  - Neutrophil count decreased [Recovered/Resolved]
  - Hypokalaemia [Recovered/Resolved]
  - Hypoproteinaemia [Not Recovered/Not Resolved]
  - Malnutrition [Not Recovered/Not Resolved]
  - Hyperferritinaemia [Not Recovered/Not Resolved]

NARRATIVE: CASE EVENT DATE: 20230811
